FAERS Safety Report 19674481 (Version 1)
Quarter: 2021Q3

REPORT INFORMATION
  Report Type: Spontaneous
  Country: IN (occurrence: IN)
  Receive Date: 20210809
  Receipt Date: 20210809
  Transmission Date: 20211014
  Serious: No
  Sender: FDA-Public Use
  Company Number: IN-ALKEM-IN-ALKEM-2021-01914

PATIENT
  Age: 9 Year
  Sex: Male

DRUGS (6)
  1. DICLOFENAC SODIUM. [Suspect]
     Active Substance: DICLOFENAC SODIUM
     Indication: ANTIINFLAMMATORY THERAPY
     Dosage: 200 MILLIGRAM, BID
     Route: 048
  2. HOMATROPINE [Suspect]
     Active Substance: HOMATROPINE HYDROBROMIDE
     Indication: ANTIFUNGAL TREATMENT
     Dosage: 2.5 PERCENT, BID
     Route: 061
  3. ITRACONAZOLE. [Suspect]
     Active Substance: ITRACONAZOLE
     Indication: ANTIFUNGAL TREATMENT
     Dosage: 1 PERCENT, HOURLY
     Route: 061
  4. LINEZOLID. [Suspect]
     Active Substance: LINEZOLID
     Indication: ANTIBIOTIC THERAPY
     Dosage: 0.2 PERCENT, HOURLY
     Route: 061
  5. AZITHROMYCIN ANHYDROUS. [Suspect]
     Active Substance: AZITHROMYCIN ANHYDROUS
     Indication: ANTIBIOTIC THERAPY
     Dosage: 1 PERCENT, HOURLY
     Route: 061
  6. NATAMYCIN [Suspect]
     Active Substance: NATAMYCIN
     Indication: ANTIFUNGAL TREATMENT
     Dosage: 5 PERCENT, HOURLY
     Route: 061

REACTIONS (1)
  - Drug ineffective [Recovering/Resolving]
